FAERS Safety Report 16882255 (Version 1)
Quarter: 2019Q4

REPORT INFORMATION
  Report Type: Spontaneous
  Country: US (occurrence: US)
  Receive Date: 20191003
  Receipt Date: 20191003
  Transmission Date: 20200122
  Serious: Yes (Other)
  Sender: FDA-Public Use
  Company Number: None

PATIENT
  Age: 21 Year
  Sex: Female
  Weight: 58.05 kg

DRUGS (1)
  1. DEPO-PROVERA [Suspect]
     Active Substance: MEDROXYPROGESTERONE ACETATE
     Indication: CONTRACEPTION
     Dosage: 150 MG/MG INTRAMUSCULAR EVERY 11 TO 13 WE
     Route: 030
     Dates: start: 20171219, end: 20191002

REACTIONS (4)
  - Foetal exposure during pregnancy [None]
  - Drug exposure before pregnancy [None]
  - Pregnancy on contraceptive [None]
  - Treatment failure [None]

NARRATIVE: CASE EVENT DATE: 20191002
